FAERS Safety Report 6457109-0 (Version None)
Quarter: 2009Q4

REPORT INFORMATION
  Report Type: 
  Country: None (occurrence: None)
  Receive Date: 20091125
  Receipt Date: 20091120
  Transmission Date: 20100525
  Serious: Yes (Hospitalization)
  Sender: FDA-Public Use
  Company Number: B0600807A

PATIENT
  Sex: Male

DRUGS (5)
  1. ZANTAC [Suspect]
     Indication: PROPHYLAXIS
     Dosage: 50MG PER DAY
     Route: 065
     Dates: start: 20091006, end: 20091006
  2. DECADRON [Suspect]
     Indication: PROPHYLAXIS OF NAUSEA AND VOMITING
     Dosage: 16MG PER DAY
     Route: 065
  3. SEROTONE [Suspect]
     Indication: PROPHYLAXIS
     Dosage: 10MG PER DAY
     Route: 065
  4. CARBOPLATIN [Suspect]
     Indication: LUNG NEOPLASM MALIGNANT
     Dosage: 439MG PER DAY
     Route: 065
  5. PACLITAXEL [Suspect]
     Indication: LUNG NEOPLASM MALIGNANT
     Dosage: 103MG PER DAY
     Route: 065

REACTIONS (5)
  - CHEST DISCOMFORT [None]
  - DEHYDRATION [None]
  - DIZZINESS [None]
  - DRUG ERUPTION [None]
  - PYREXIA [None]
